FAERS Safety Report 5389868-2 (Version None)
Quarter: 2007Q3

REPORT INFORMATION
  Report Type: 
  Country: None (occurrence: None)
  Receive Date: 20070718
  Receipt Date: 20070710
  Transmission Date: 20080115
  Serious: Yes (Other)
  Sender: FDA-Public Use
  Company Number: PHBS2007NZ11839

PATIENT
  Age: 27 Year
  Sex: Male

DRUGS (4)
  1. CLOZARIL [Suspect]
     Dosage: 50 MG MANE, 400 MG NOCTE
     Route: 048
  2. ATOMOXETINE [Concomitant]
  3. PANTOPRAZOLE SODIUM [Concomitant]
     Dosage: 80 MG/D
  4. AMISULPRIDE [Concomitant]
     Dosage: 400 MG, BID

REACTIONS (7)
  - DUODENITIS [None]
  - ENDOSCOPY UPPER GASTROINTESTINAL TRACT [None]
  - GASTRIC ULCER [None]
  - GASTRITIS [None]
  - HEPATIC ENZYME INCREASED [None]
  - REFLUX OESOPHAGITIS [None]
  - VOMITING [None]
